FAERS Safety Report 22145198 (Version 1)
Quarter: 2023Q1

REPORT INFORMATION
  Report Type: Spontaneous
  Country: US (occurrence: US)
  Receive Date: 20230328
  Receipt Date: 20230328
  Transmission Date: 20230417
  Serious: Yes (Hospitalization, Other)
  Sender: FDA-Public Use
  Company Number: US-AMGEN-USASP2023051353

PATIENT
  Age: 68 Year
  Sex: Female

DRUGS (18)
  1. FILGRASTIM [Suspect]
     Active Substance: FILGRASTIM
     Indication: Plasma cell myeloma
     Dosage: UNK
     Route: 065
  2. MELPHALAN [Concomitant]
     Active Substance: MELPHALAN
  3. BORTEZOMIB [Concomitant]
     Active Substance: BORTEZOMIB
  4. THALIDOMIDE [Concomitant]
     Active Substance: THALIDOMIDE
  5. ADRIAMYCIN [Concomitant]
     Active Substance: DOXORUBICIN HYDROCHLORIDE
  6. CYCLOPHOSPHAMIDE [Concomitant]
     Active Substance: CYCLOPHOSPHAMIDE
  7. CISPLATIN [Concomitant]
     Active Substance: CISPLATIN
  8. ETOPOSIDE [Concomitant]
     Active Substance: ETOPOSIDE
  9. PLERIXAFOR [Concomitant]
     Active Substance: PLERIXAFOR
  10. DEXAMETHASONE [Concomitant]
     Active Substance: DEXAMETHASONE
  11. SULFAMETHOXAZOLE [Concomitant]
     Active Substance: SULFAMETHOXAZOLE
     Dosage: 15 MILLIGRAM/KILOGRAM, QD
     Route: 042
  12. TRIMETHOPRIM [Concomitant]
     Active Substance: TRIMETHOPRIM
     Dosage: 15 MILLIGRAM/KILOGRAM, QD
     Route: 042
  13. IMIPENEM AND CILASTATIN [Concomitant]
     Active Substance: CILASTATIN SODIUM\IMIPENEM
     Dosage: UNK, Q8H
     Route: 042
  14. LEVETIRACETAM [Concomitant]
     Active Substance: LEVETIRACETAM
  15. LINEZOLID [Concomitant]
     Active Substance: LINEZOLID
     Dosage: 600 MILLIGRAM, BID
     Route: 042
  16. MOXIFLOXACIN [Concomitant]
     Active Substance: MOXIFLOXACIN
     Dosage: 400 MILLIGRAM, QD
     Route: 042
  17. AMIKACIN [Concomitant]
     Active Substance: AMIKACIN
     Dosage: 15 MILLIGRAM/KILOGRAM, QD
     Route: 042
  18. TEDIZOLID [Concomitant]
     Active Substance: TEDIZOLID
     Dosage: 200 MILLIGRAM, QD
     Route: 048

REACTIONS (12)
  - Pneumonia bacterial [Not Recovered/Not Resolved]
  - Atrial fibrillation [Recovered/Resolved]
  - Facial paralysis [Unknown]
  - Hemiplegia [Unknown]
  - Bronchopulmonary aspergillosis [Unknown]
  - Cerebral nocardiosis [Not Recovered/Not Resolved]
  - Pneumatosis intestinalis [Unknown]
  - Parainfluenzae virus infection [Not Recovered/Not Resolved]
  - Urinary tract infection [Not Recovered/Not Resolved]
  - Plasma cell myeloma [Unknown]
  - Bone marrow failure [Not Recovered/Not Resolved]
  - Metapneumovirus infection [Not Recovered/Not Resolved]
